FAERS Safety Report 17400459 (Version 1)
Quarter: 2020Q1

REPORT INFORMATION
  Report Type: Spontaneous
  Country: FR (occurrence: FR)
  Receive Date: 20200211
  Receipt Date: 20200211
  Transmission Date: 20200409
  Serious: Yes (Hospitalization)
  Sender: FDA-Public Use
  Company Number: FR-TEVA-2020-FR-1182995

PATIENT
  Age: 52 Year
  Sex: Female

DRUGS (3)
  1. METHYLPHENIDATE. [Interacting]
     Active Substance: METHYLPHENIDATE
     Dosage: 40 MILLIGRAM DAILY; CUMULATIVE EXPOSURE: 1080 DAYS, CUMULATIVE DOSE: 43G
     Route: 065
     Dates: start: 201505, end: 20180428
  2. PITOLISANT [Interacting]
     Active Substance: PITOLISANT
     Dosage: 18 MILLIGRAM DAILY;
     Route: 065
     Dates: start: 201709
  3. VENLAFAXINE [Suspect]
     Active Substance: VENLAFAXINE HYDROCHLORIDE
     Dosage: 150 MILLIGRAM DAILY;
     Route: 065
     Dates: start: 201505

REACTIONS (4)
  - Insomnia [Unknown]
  - Vasospasm [Unknown]
  - Splenic infarction [Unknown]
  - Drug interaction [Unknown]

NARRATIVE: CASE EVENT DATE: 2018
